FAERS Safety Report 4533583-1 (Version None)
Quarter: 2004Q4

REPORT INFORMATION
  Report Type: 
  Country: None (occurrence: None)
  Receive Date: 20041221
  Receipt Date: 20041210
  Transmission Date: 20050328
  Serious: Yes (Life-Threatening, Hospitalization)
  Sender: FDA-Public Use
  Company Number: BR-JNJFOC-20041201127

PATIENT
  Age: 26 Year
  Sex: Female

DRUGS (3)
  1. HALDOL [Suspect]
     Indication: DRUG USE FOR UNKNOWN INDICATION
     Route: 049
  2. CARBAMAZEPINE [Suspect]
     Indication: UNEVALUABLE EVENT
     Route: 049
  3. PHENOBARBITAL TAB [Suspect]
     Indication: UNEVALUABLE EVENT
     Route: 049

REACTIONS (4)
  - COMA [None]
  - MULTIPLE DRUG OVERDOSE INTENTIONAL [None]
  - OVERDOSE [None]
  - SUICIDE ATTEMPT [None]
